FAERS Safety Report 5553117-2 (Version None)
Quarter: 2007Q4

REPORT INFORMATION
  Report Type: 
  Country: None (occurrence: None)
  Receive Date: 20071211
  Receipt Date: 20071203
  Transmission Date: 20080405
  Serious: Yes (Death, Hospitalization)
  Sender: FDA-Public Use
  Company Number: WAES 0710USA06941

PATIENT
  Age: 59 Year
  Sex: Female
  Weight: 87.9978 kg

DRUGS (10)
  1. DECADRON [Suspect]
     Dosage: 4 MG DAILY PO
     Route: 048
     Dates: start: 20071001
  2. TEMODAR [Suspect]
     Indication: GLIOBLASTOMA MULTIFORME
     Dosage: 75 MG M[2] DAILY PO, PO, 125 MG/M [2] 1WKS ON 1WK OFF PO
     Route: 048
     Dates: start: 20070701, end: 20070801
  3. TEMODAR [Suspect]
     Indication: GLIOBLASTOMA MULTIFORME
     Dosage: 75 MG M[2] DAILY PO, PO, 125 MG/M [2] 1WKS ON 1WK OFF PO
     Route: 048
     Dates: start: 20070927, end: 20071001
  4. TEMODAR [Suspect]
     Indication: GLIOBLASTOMA MULTIFORME
     Dosage: 75 MG M[2] DAILY PO, PO, 125 MG/M [2] 1WKS ON 1WK OFF PO
     Route: 048
     Dates: start: 20071025
  5. BACTRIM DS [Suspect]
     Dosage: 1 DOSE 3XW PO
     Route: 048
     Dates: start: 20070716
  6. KEPPRA [Suspect]
     Dosage: 500 MG BID PO
     Route: 048
     Dates: start: 20071001
  7. PRILOSEC [Concomitant]
  8. SYNTHROID [Concomitant]
  9. VALTREX [Concomitant]
  10. FLUCONAZOLE [Concomitant]

REACTIONS (10)
  - ABASIA [None]
  - ASTHENIA [None]
  - COGNITIVE DISORDER [None]
  - CUSHING'S SYNDROME [None]
  - DISEASE PROGRESSION [None]
  - GLIOBLASTOMA MULTIFORME [None]
  - LYMPHOPENIA [None]
  - MALIGNANT NEOPLASM PROGRESSION [None]
  - NO THERAPEUTIC RESPONSE [None]
  - ORAL CANDIDIASIS [None]
